FAERS Safety Report 5732784-4 (Version None)
Quarter: 2008Q2

REPORT INFORMATION
  Report Type: 
  Country: None (occurrence: None)
  Receive Date: 20080507
  Receipt Date: 20080507
  Transmission Date: 20081010
  Serious: Yes (Death)
  Sender: FDA-Public Use
  Company Number: None

PATIENT
  Age: 80 Year
  Sex: Female

DRUGS (3)
  1. ALTEPLASE [Suspect]
     Indication: CEREBROVASCULAR ACCIDENT
  2. CLOPIDOGREL [Suspect]
     Indication: CEREBROVASCULAR ACCIDENT
     Dosage: PO
     Route: 048
  3. ASPIRIN [Suspect]
     Indication: CEREBROVASCULAR ACCIDENT
     Dosage: PO
     Route: 048

REACTIONS (8)
  - AGITATION [None]
  - APHASIA [None]
  - APNOEIC ATTACK [None]
  - AREFLEXIA [None]
  - CEREBRAL HAEMORRHAGE [None]
  - CEREBROVASCULAR ACCIDENT [None]
  - COMA [None]
  - HYPERTENSION [None]
